FAERS Safety Report 21081596 (Version 2)
Quarter: 2024Q2

REPORT INFORMATION
  Report Type: Report from Study
  Country: CA (occurrence: CA)
  Receive Date: 20220714
  Receipt Date: 20240423
  Transmission Date: 20240716
  Serious: Yes (Life-Threatening, Hospitalization)
  Sender: FDA-Public Use
  Company Number: CA-BIOGEN-2022BI01138403

PATIENT
  Age: 44 Year
  Sex: Female

DRUGS (1)
  1. DALFAMPRIDINE [Suspect]
     Active Substance: DALFAMPRIDINE
     Indication: Multiple sclerosis
     Route: 050
     Dates: start: 20210812

REACTIONS (7)
  - COVID-19 [Recovered/Resolved]
  - Product dose omission in error [Not Recovered/Not Resolved]
  - Muscular weakness [Unknown]
  - Muscle spasms [Unknown]
  - Gait disturbance [Unknown]
  - Urinary tract infection [Recovered/Resolved]
  - Dizziness [Unknown]

NARRATIVE: CASE EVENT DATE: 20240228
